FAERS Safety Report 10914633 (Version 2)
Quarter: 2015Q2

REPORT INFORMATION
  Report Type: Report from Study
  Country: CA (occurrence: CA)
  Receive Date: 20150313
  Receipt Date: 20150403
  Transmission Date: 20150821
  Serious: Yes (Hospitalization)
  Sender: FDA-Public Use
  Company Number: PHHY2014CA148386

PATIENT
  Age: 76 Year
  Sex: Female

DRUGS (2)
  1. SANDOSTATIN LAR DEPOT [Suspect]
     Active Substance: OCTREOTIDE ACETATE
     Indication: NEUROENDOCRINE TUMOUR
     Dosage: 20 MG, ONCE A MONTH (QMO)
     Route: 030
     Dates: start: 20141009
  2. SANDOSTATIN [Suspect]
     Active Substance: OCTREOTIDE ACETATE
     Indication: NEUROENDOCRINE TUMOUR
     Dosage: 100 UG, TEST DOSE
     Route: 058
     Dates: start: 20140909, end: 20140909

REACTIONS (8)
  - Respiratory disorder [Recovering/Resolving]
  - Abdominal pain upper [Unknown]
  - Hypotension [Unknown]
  - Skin sensitisation [Unknown]
  - Blood pressure increased [Unknown]
  - Dysphagia [Recovering/Resolving]
  - Headache [Unknown]
  - Malaise [Recovering/Resolving]

NARRATIVE: CASE EVENT DATE: 20141009
